FAERS Safety Report 25658759 (Version 2)
Quarter: 2025Q3

REPORT INFORMATION
  Report Type: Spontaneous
  Country: US (occurrence: US)
  Receive Date: 20250808
  Receipt Date: 20250821
  Transmission Date: 20251021
  Serious: No
  Sender: IPSEN BIOPHARMACEUTICALS, INC.
  Company Number: US-IPSEN Group, Research and Development-2025-19248

PATIENT
  Age: 81 Year
  Sex: Female
  Weight: 96 kg

DRUGS (19)
  1. TAZVERIK [Suspect]
     Active Substance: TAZEMETOSTAT HYDROBROMIDE
     Indication: Follicular lymphoma
     Dates: start: 20250712
  2. ALLEGRA ALLERGY [Concomitant]
     Active Substance: FEXOFENADINE HYDROCHLORIDE
  3. ALLOPURINOL [Concomitant]
     Active Substance: ALLOPURINOL
  4. AMOXICILLIN [Concomitant]
     Active Substance: AMOXICILLIN
  5. BENZONATATE [Concomitant]
     Active Substance: BENZONATATE
  6. DULCOLAX [Concomitant]
  7. ENTRESTO [Concomitant]
     Active Substance: SACUBITRIL\VALSARTAN
  8. FLUTICASONE PROPIONATE [Concomitant]
     Active Substance: FLUTICASONE PROPIONATE
  9. LASIX [Concomitant]
     Active Substance: FUROSEMIDE
  10. METOPROLOL TARTRATE [Concomitant]
     Active Substance: METOPROLOL TARTRATE
  11. PEPCID [Concomitant]
     Active Substance: FAMOTIDINE
  12. PRAVASTATIN [Concomitant]
     Active Substance: PRAVASTATIN
  13. REFRESH TEARS [Concomitant]
     Active Substance: CARBOXYMETHYLCELLULOSE SODIUM
  14. SPIRONOLACTONE [Concomitant]
     Active Substance: SPIRONOLACTONE
  15. TRAMADOL [Concomitant]
     Active Substance: TRAMADOL
  16. SYSTANE ULTRA [Concomitant]
     Active Substance: POLYETHYLENE GLYCOL 400\PROPYLENE GLYCOL
  17. TRIAMCINOLONE [Concomitant]
     Active Substance: TRIAMCINOLONE
  18. TYLENOL [Concomitant]
     Active Substance: ACETAMINOPHEN
  19. XARELTO [Concomitant]
     Active Substance: RIVAROXABAN

REACTIONS (2)
  - Breast swelling [Unknown]
  - Breast discolouration [Unknown]
